FAERS Safety Report 12612854 (Version 1)
Quarter: 2016Q3

REPORT INFORMATION
  Report Type: Spontaneous
  Country: CN (occurrence: CN)
  Receive Date: 20160802
  Receipt Date: 20160802
  Transmission Date: 20161109
  Serious: Yes (Other)
  Sender: FDA-Public Use
  Company Number: CN-JNJFOC-20160721077

PATIENT

DRUGS (3)
  1. IBUPROFEN. [Suspect]
     Active Substance: IBUPROFEN
     Indication: PATENT DUCTUS ARTERIOSUS
     Route: 050
  2. IBUPROFEN. [Suspect]
     Active Substance: IBUPROFEN
     Indication: PATENT DUCTUS ARTERIOSUS
     Route: 050
  3. IBUPROFEN. [Suspect]
     Active Substance: IBUPROFEN
     Indication: PATENT DUCTUS ARTERIOSUS
     Route: 050

REACTIONS (8)
  - Oliguria [Unknown]
  - Necrotising colitis [Unknown]
  - Intraventricular haemorrhage [Unknown]
  - Incorrect route of drug administration [Unknown]
  - Gastric haemorrhage [Unknown]
  - Feeding intolerance [Unknown]
  - Product use issue [Unknown]
  - Off label use [Unknown]
